FAERS Safety Report 17238223 (Version 1)
Quarter: 2020Q1

REPORT INFORMATION
  Report Type: Spontaneous
  Country: CN (occurrence: CN)
  Receive Date: 20200106
  Receipt Date: 20200106
  Transmission Date: 20200409
  Serious: Yes (Hospitalization)
  Sender: FDA-Public Use
  Company Number: NVSC2019CN085171

PATIENT
  Age: 64 Year
  Sex: Male
  Weight: 48 kg

DRUGS (9)
  1. ZOLEDRONIC ACID [Suspect]
     Active Substance: ZOLEDRONIC ACID
     Indication: IMMUNOSUPPRESSION
     Dosage: 4 MG, QD
     Route: 042
     Dates: start: 20190214, end: 20190215
  2. SODIUM CHLORIDE. [Suspect]
     Active Substance: SODIUM CHLORIDE
     Indication: LUNG NEOPLASM MALIGNANT
     Dosage: 100 ML, QD
     Route: 042
     Dates: start: 20190213, end: 20190215
  3. PEMETREXED DISODIUM [Suspect]
     Active Substance: PEMETREXED DISODIUM
     Indication: LUNG NEOPLASM MALIGNANT
  4. BOLDINE [Suspect]
     Active Substance: BOLDINE
     Indication: LUNG NEOPLASM MALIGNANT
  5. SODIUM CHLORIDE. [Suspect]
     Active Substance: SODIUM CHLORIDE
     Indication: IMMUNOSUPPRESSION
     Dosage: 500 ML, QD
     Route: 042
     Dates: start: 20190213, end: 20190215
  6. SODIUM CHLORIDE. [Suspect]
     Active Substance: SODIUM CHLORIDE
     Dosage: 100 ML, QD
     Route: 042
     Dates: start: 20190214, end: 20190215
  7. PEMETREXED DISODIUM [Suspect]
     Active Substance: PEMETREXED DISODIUM
     Indication: IMMUNOSUPPRESSION
     Dosage: 0.76 G, QD
     Route: 042
     Dates: start: 20190213, end: 20190215
  8. ZOLEDRONIC ACID [Suspect]
     Active Substance: ZOLEDRONIC ACID
     Indication: LUNG NEOPLASM MALIGNANT
  9. BOLDINE [Suspect]
     Active Substance: BOLDINE
     Indication: IMMUNOSUPPRESSION
     Dosage: 0.38 G, QD
     Route: 042
     Dates: start: 20190213, end: 20190215

REACTIONS (1)
  - Bone marrow failure [Recovering/Resolving]

NARRATIVE: CASE EVENT DATE: 20190223
